FAERS Safety Report 24598403 (Version 1)
Quarter: 2024Q4

REPORT INFORMATION
  Report Type: Spontaneous
  Country: US (occurrence: US)
  Receive Date: 20241110
  Receipt Date: 20241110
  Transmission Date: 20250115
  Serious: No
  Sender: SANOFI AVENTIS
  Company Number: US-SA-2024SA319961

PATIENT
  Sex: Female

DRUGS (1)
  1. APIDRA [Suspect]
     Active Substance: INSULIN GLULISINE
     Dosage: 20 UNITS IN THE MORNING, 20 UNITS AT NOON AND 14 UNITS AT NIGHT

REACTIONS (1)
  - Dizziness [Recovering/Resolving]
